FAERS Safety Report 7527768-X (Version None)
Quarter: 2011Q2

REPORT INFORMATION
  Report Type: 
  Country: None (occurrence: None)
  Receive Date: 20110512
  Receipt Date: 20110202
  Transmission Date: 20111010
  Serious: No
  Sender: FDA-Public Use
  Company Number: 1000018632

PATIENT
  Age: 49 Year
  Sex: Female

DRUGS (3)
  1. SAVELLA [Suspect]
     Indication: FIBROMYALGIA
     Dosage: SEE IMAGE
     Route: 048
     Dates: start: 20091101, end: 20091101
  2. SAVELLA [Suspect]
     Indication: FIBROMYALGIA
     Dosage: SEE IMAGE
     Route: 048
     Dates: start: 20091101
  3. VALPREX (VALACICLOVIR HYDROCHLORIDE) (1000 MILLIGRAM, TABLETS) (VALACI [Concomitant]

REACTIONS (5)
  - HOT FLUSH [None]
  - NAUSEA [None]
  - ASTHENIA [None]
  - DYSPEPSIA [None]
  - DRUG INEFFECTIVE [None]
